FAERS Safety Report 22174365 (Version 2)
Quarter: 2023Q2

REPORT INFORMATION
  Report Type: Spontaneous
  Country: CN (occurrence: CN)
  Receive Date: 20230405
  Receipt Date: 20230503
  Transmission Date: 20230722
  Serious: Yes (Death)
  Sender: FDA-Public Use
  Company Number: CN-ROCHE-3317679

PATIENT
  Age: 40 Year
  Sex: Male
  Weight: 68 kg

DRUGS (22)
  1. CAPECITABINE [Suspect]
     Active Substance: CAPECITABINE
     Indication: Oesophageal cancer metastatic
     Dosage: BID?DOSE LAST STUDY DRUG ADMIN PRIOR AE IS 3500 MG 28/OCT/2022, START DATE AND END DATE OF MOST ...
     Route: 048
     Dates: start: 20220630
  2. ATEZOLIZUMAB [Suspect]
     Active Substance: ATEZOLIZUMAB
     Indication: Oesophageal cancer metastatic
     Dosage: INTRAVENOUS DRIP, EVERY 3 WEEK?DOSE LAST STUDY DRUG ADMIN PRIOR AE WAS 1200 MG ON 03/FEB/2023, H...
     Route: 042
     Dates: start: 20220630
  3. TIRAGOLUMAB [Suspect]
     Active Substance: TIRAGOLUMAB
     Indication: Oesophageal cancer metastatic
     Dosage: EVERY 3 WEEK?DOSE LAST STUDY DRUG ADMIN PRIOR AE IS 600 MG START DATE OF MOST RECENT DOSE OF STU...
     Route: 042
     Dates: start: 20220630
  4. OXALIPLATIN [Suspect]
     Active Substance: OXALIPLATIN
     Indication: Oesophageal cancer metastatic
     Dosage: EVERY 3 WEEK?DOSE LAST STUDY DRUG ADMIN PRIOR AE IS 230 MG START DATE OF MOST RECENT DOSE OF STU...
     Route: 042
     Dates: start: 20220630
  5. METHYLPREDNISOLONE SODIUM SUCCINATE [Concomitant]
     Active Substance: METHYLPREDNISOLONE SODIUM SUCCINATE
     Dates: start: 20230321, end: 20230326
  6. METHYLPREDNISOLONE SODIUM SUCCINATE [Concomitant]
     Active Substance: METHYLPREDNISOLONE SODIUM SUCCINATE
     Dates: start: 20230326, end: 20230327
  7. METHYLPREDNISOLONE SODIUM SUCCINATE [Concomitant]
     Active Substance: METHYLPREDNISOLONE SODIUM SUCCINATE
     Dates: start: 20230401, end: 20230413
  8. BUDESONIDE [Concomitant]
     Active Substance: BUDESONIDE
  9. TERBUTALINE [Concomitant]
     Active Substance: TERBUTALINE
  10. CODEINE SULFATE [Concomitant]
     Active Substance: CODEINE SULFATE
  11. METHYLPREDNISOLONE [Concomitant]
     Active Substance: METHYLPREDNISOLONE
     Dates: start: 20230414, end: 20230419
  12. METHYLPREDNISOLONE [Concomitant]
     Active Substance: METHYLPREDNISOLONE
     Dates: start: 20230420, end: 20230422
  13. DOXOFYLLINE [Concomitant]
     Active Substance: DOXOFYLLINE
  14. CEFOPERAZONE SODIUM\SULBACTAM SODIUM [Concomitant]
     Active Substance: CEFOPERAZONE SODIUM\SULBACTAM SODIUM
     Dates: start: 20230414
  15. CEFOPERAZONE SODIUM\SULBACTAM SODIUM [Concomitant]
     Active Substance: CEFOPERAZONE SODIUM\SULBACTAM SODIUM
     Dates: start: 20230420, end: 20230422
  16. ROXATIDINE [Concomitant]
     Active Substance: ROXATIDINE
     Dates: start: 20230419, end: 20230420
  17. BROMINE [Concomitant]
     Active Substance: BROMINE
     Dates: start: 20230414, end: 20230419
  18. BROMINE [Concomitant]
     Active Substance: BROMINE
     Dates: start: 20230420, end: 20230422
  19. BROMHEXINE [Concomitant]
     Active Substance: BROMHEXINE
  20. IPRATROPIUM BROMIDE [Concomitant]
     Active Substance: IPRATROPIUM BROMIDE\IPRATROPIUM BROMIDE ANHYDROUS
  21. MONTELUKAST SODIUM [Concomitant]
     Active Substance: MONTELUKAST SODIUM
  22. OMEPRAZOLE [Concomitant]
     Active Substance: OMEPRAZOLE

REACTIONS (1)
  - Immune-mediated lung disease [Fatal]

NARRATIVE: CASE EVENT DATE: 20230224
